FAERS Safety Report 5479780-2 (Version None)
Quarter: 2007Q4

REPORT INFORMATION
  Report Type: 
  Country: None (occurrence: None)
  Receive Date: 20071008
  Receipt Date: 20071001
  Transmission Date: 20080405
  Serious: Yes (Other)
  Sender: FDA-Public Use
  Company Number: US-GENENTECH-238130

PATIENT
  Sex: Female
  Weight: 77.098 kg

DRUGS (5)
  1. LUCENTIS [Suspect]
     Indication: MACULAR DEGENERATION
     Dosage: UNK, 1/MONTH
     Route: 031
     Dates: start: 20070123
  2. PAXIL CR [Concomitant]
     Indication: DRUG USE FOR UNKNOWN INDICATION
     Dosage: 37.5 UNK, QD
  3. HYDROCHLOROTHIAZIDE [Concomitant]
     Indication: JOINT SWELLING
     Dosage: 25 MG, QD
  4. XANAX [Concomitant]
     Indication: DRUG USE FOR UNKNOWN INDICATION
     Dosage: 0.5 MG, QPM
  5. MONOPRIL [Concomitant]
     Indication: HYPERTENSION

REACTIONS (1)
  - BLOOD PRESSURE INCREASED [None]
